FAERS Safety Report 20405850 (Version 3)
Quarter: 2025Q3

REPORT INFORMATION
  Report Type: Spontaneous
  Country: EU (occurrence: EU)
  Receive Date: 20220131
  Receipt Date: 20250815
  Transmission Date: 20251021
  Serious: Yes (Hospitalization, Other)
  Sender: BOEHRINGER INGELHEIM
  Company Number: EU-BoehringerIngelheim-2022-BI-109148

PATIENT
  Age: 86 Year
  Sex: Male

DRUGS (1)
  1. OFEV [Suspect]
     Active Substance: NINTEDANIB
     Indication: Idiopathic pulmonary fibrosis

REACTIONS (6)
  - Cholecystitis [Unknown]
  - Liver abscess [Unknown]
  - Pancreatitis acute [Unknown]
  - Idiopathic pulmonary fibrosis [Unknown]
  - Enterococcal bacteraemia [Unknown]
  - Respiratory disorder [Unknown]
